FAERS Safety Report 10068127 (Version 2)
Quarter: 2014Q2

REPORT INFORMATION
  Report Type: Spontaneous
  Country: US (occurrence: US)
  Receive Date: 20140409
  Receipt Date: 20140409
  Transmission Date: 20141212
  Serious: No
  Sender: FDA-Public Use
  Company Number: US-PFIZER INC-2013070454

PATIENT
  Age: 79 Year
  Sex: Female

DRUGS (14)
  1. LYRICA [Suspect]
     Dosage: 150 MG, 3X/DAY (75MG 2 PO QAM, 2 PO NOON, 2 PO QHS)
     Route: 048
  2. LYRICA [Suspect]
     Dosage: 200 MG THREE TIMES DAILY (100 MG 2 PO Q AM, 2 AT NOON, 2 AT HS)
     Route: 048
  3. PREMARIN [Suspect]
     Dosage: 1.25 MG, 1X/DAY (1.25MG 1 PO TABLET, Q AM)
     Route: 048
  4. HYDROCHLORZIDE [Concomitant]
     Dosage: UNK
  5. SYNTHROID [Concomitant]
     Dosage: UNK
  6. SAVELLA [Concomitant]
     Dosage: UNK
  7. PRILOSEC [Concomitant]
     Dosage: UNK
  8. NAPROXEN [Concomitant]
     Dosage: UNK
  9. WELLBUTRIN [Concomitant]
     Dosage: UNK
  10. DOXEPIN [Concomitant]
     Dosage: UNK
  11. ADDERALL [Concomitant]
     Dosage: UNK
  12. LORTAB [Concomitant]
     Dosage: UNK
  13. METOPROLOL [Concomitant]
     Dosage: UNK
  14. ZOCOR [Concomitant]
     Dosage: UNK

REACTIONS (1)
  - Dyslexia [Unknown]
